FAERS Safety Report 4920017-8 (Version None)
Quarter: 2006Q1

REPORT INFORMATION
  Report Type: 
  Country: None (occurrence: None)
  Receive Date: 20060223
  Receipt Date: 20060213
  Transmission Date: 20060701
  Serious: Yes (Other)
  Sender: FDA-Public Use
  Company Number: 2006UW02391

PATIENT
  Age: 29 Year
  Sex: Male

DRUGS (4)
  1. SEROQUEL [Suspect]
     Route: 048
     Dates: start: 20060125, end: 20060127
  2. SEROQUEL [Suspect]
     Dosage: TAPERED UP
     Route: 048
     Dates: start: 20060128, end: 20060211
  3. SEROQUEL [Suspect]
     Route: 048
     Dates: start: 20060212
  4. CLONAZEPAM [Concomitant]
     Indication: ANXIETY

REACTIONS (4)
  - DRUG INEFFECTIVE [None]
  - HALLUCINATION, AUDITORY [None]
  - HALLUCINATION, VISUAL [None]
  - SUICIDAL IDEATION [None]
